FAERS Safety Report 8936535 (Version 1)
Quarter: 2012Q4

REPORT INFORMATION
  Report Type: 
  Country: DE (occurrence: DE)
  Receive Date: 20121130
  Receipt Date: 20121130
  Transmission Date: 20130627
  Serious: Yes (Other)
  Sender: FDA-Public Use
  Company Number: DE-PFIZER INC-2012297216

PATIENT
  Sex: Male

DRUGS (7)
  1. SERTRALINE HCL [Suspect]
     Dosage: UNK
  2. TAVOR [Suspect]
     Dosage: 1 mg, UNK
     Dates: start: 201206
  3. DOXEPIN [Suspect]
     Dosage: UNK
  4. CHLORPROTHIXENE [Suspect]
     Dosage: UNK
  5. VALPROATE [Suspect]
     Dosage: UNK
  6. ZOPICLONE [Suspect]
     Dosage: UNK
  7. EFEROX [Suspect]
     Dosage: UNK

REACTIONS (3)
  - Mania [Unknown]
  - Drug dependence [Unknown]
  - Tremor [Unknown]
